FAERS Safety Report 8171132-X (Version None)
Quarter: 2012Q1

REPORT INFORMATION
  Report Type: 
  Country: None (occurrence: None)
  Receive Date: 20120228
  Receipt Date: 20120216
  Transmission Date: 20120608
  Serious: Yes (Death)
  Sender: FDA-Public Use
  Company Number: CA-PFIZER INC-2012042211

PATIENT
  Age: 43 Year
  Sex: Male
  Weight: 54.8 kg

DRUGS (3)
  1. FRAGMIN [Concomitant]
     Indication: THROMBOSIS
     Dosage: UNK
     Dates: start: 20110316
  2. ADVAIR DISKUS 100/50 [Concomitant]
     Indication: ASTHMA
     Dosage: UNK
     Dates: start: 20091209
  3. CRIZOTINIB [Suspect]
     Indication: NON-SMALL CELL LUNG CANCER
     Dosage: 250 MG, 2X/DAY
     Route: 048
     Dates: start: 20101222

REACTIONS (1)
  - DEATH [None]
